FAERS Safety Report 18767471 (Version 1)
Quarter: 2021Q1

REPORT INFORMATION
  Report Type: Report from Study
  Country: CA (occurrence: CA)
  Receive Date: 20210121
  Receipt Date: 20210121
  Transmission Date: 20210419
  Serious: Yes (Other)
  Sender: FDA-Public Use
  Company Number: CA-EXELIXIS-CABO-21036779

PATIENT
  Age: 82 Year
  Sex: Male
  Weight: 63.9 kg

DRUGS (1)
  1. CABOMETYX [Suspect]
     Active Substance: CABOZANTINIB S-MALATE
     Indication: NON-SMALL CELL LUNG CANCER STAGE IV
     Dosage: 60 MG, QD
     Route: 048
     Dates: start: 202012

REACTIONS (3)
  - Aspartate aminotransferase increased [Recovered/Resolved]
  - Off label use [Unknown]
  - Blood bilirubin increased [Recovered/Resolved]

NARRATIVE: CASE EVENT DATE: 20210104
